FAERS Safety Report 7108147-6 (Version None)
Quarter: 2010Q4

REPORT INFORMATION
  Report Type: 
  Country: None (occurrence: None)
  Receive Date: 20101110
  Receipt Date: 20101104
  Transmission Date: 20110411
  Serious: Yes (Hospitalization, Other)
  Sender: FDA-Public Use
  Company Number: 2010SP004556

PATIENT
  Age: 30 Year
  Sex: Female
  Weight: 77.1115 kg

DRUGS (1)
  1. NUVARING [Suspect]
     Indication: MENSTRUAL CYCLE MANAGEMENT
     Dates: start: 20060101, end: 20080101

REACTIONS (25)
  - AMNESIA [None]
  - ANEURYSM [None]
  - ANXIETY [None]
  - BACK PAIN [None]
  - BLOOD DISORDER [None]
  - BLOOD TRIGLYCERIDES INCREASED [None]
  - CEREBRAL VENOUS THROMBOSIS [None]
  - CEREBROVASCULAR DISORDER [None]
  - CHOLECYSTECTOMY [None]
  - COSTOCHONDRITIS [None]
  - DEEP VEIN THROMBOSIS [None]
  - DEPRESSION [None]
  - DRUG INEFFECTIVE [None]
  - HEADACHE [None]
  - HYPERCOAGULATION [None]
  - INSOMNIA [None]
  - MIGRAINE [None]
  - NECK PAIN [None]
  - OVARIAN CYST [None]
  - PALPITATIONS [None]
  - PHOTOPHOBIA [None]
  - PNEUMONIA [None]
  - SCOLIOSIS [None]
  - THYROID DISORDER [None]
  - VISUAL IMPAIRMENT [None]
